FAERS Safety Report 21433332 (Version 1)
Quarter: 2022Q4

REPORT INFORMATION
  Report Type: Spontaneous
  Country: CN (occurrence: CN)
  Receive Date: 20221010
  Receipt Date: 20221010
  Transmission Date: 20230113
  Serious: Yes (Hospitalization)
  Sender: FDA-Public Use
  Company Number: CN-STRIDES ARCOLAB LIMITED-2022SP012788

PATIENT
  Age: 27 Year
  Sex: Female

DRUGS (12)
  1. PREDNISOLONE [Suspect]
     Active Substance: PREDNISOLONE
     Indication: Non-Hodgkin^s lymphoma stage IV
     Dosage: UNK, CYCLICAL (2 CYCLES)
     Route: 065
  2. PREDNISOLONE [Suspect]
     Active Substance: PREDNISOLONE
     Indication: B-cell lymphoma
  3. ETOPOSIDE [Suspect]
     Active Substance: ETOPOSIDE
     Indication: Non-Hodgkin^s lymphoma stage IV
     Dosage: UNK, CYCLICAL (1 CYCLE)
     Route: 065
  4. ETOPOSIDE [Suspect]
     Active Substance: ETOPOSIDE
     Indication: B-cell lymphoma
  5. RITUXIMAB [Suspect]
     Active Substance: RITUXIMAB
     Indication: Non-Hodgkin^s lymphoma stage IV
     Dosage: 600 MILLIGRAM
     Route: 042
  6. RITUXIMAB [Suspect]
     Active Substance: RITUXIMAB
     Indication: B-cell lymphoma
     Dosage: UNK, CYCLICAL (2 CYCLES)
     Route: 065
  7. CYCLOPHOSPHAMIDE [Suspect]
     Active Substance: CYCLOPHOSPHAMIDE
     Indication: Non-Hodgkin^s lymphoma stage IV
     Dosage: UNK, CYCLICAL (2 CYCLES)
     Route: 065
  8. CYCLOPHOSPHAMIDE [Suspect]
     Active Substance: CYCLOPHOSPHAMIDE
     Indication: B-cell lymphoma
  9. ONCOVIN [Suspect]
     Active Substance: VINCRISTINE SULFATE
     Indication: Non-Hodgkin^s lymphoma stage IV
     Dosage: UNK, CYCLICAL (2 CYCLES)
     Route: 065
  10. ONCOVIN [Suspect]
     Active Substance: VINCRISTINE SULFATE
     Indication: B-cell lymphoma
  11. DOXORUBICIN [Suspect]
     Active Substance: DOXORUBICIN
     Indication: Non-Hodgkin^s lymphoma stage IV
     Dosage: UNK, CYCLICAL (2 CYCLES)
     Route: 065
  12. DOXORUBICIN [Suspect]
     Active Substance: DOXORUBICIN
     Indication: B-cell lymphoma

REACTIONS (9)
  - Pulmonary alveolar haemorrhage [Unknown]
  - Myelosuppression [Recovered/Resolved]
  - Interstitial lung disease [Recovered/Resolved]
  - Mouth ulceration [Unknown]
  - Pyrexia [Unknown]
  - Haemoptysis [Recovered/Resolved]
  - Delirium [Unknown]
  - Upper respiratory tract infection [Recovered/Resolved]
  - Off label use [Unknown]
